FAERS Safety Report 16098942 (Version 4)
Quarter: 2019Q2

REPORT INFORMATION
  Report Type: Spontaneous
  Country: US (occurrence: US)
  Receive Date: 20190321
  Receipt Date: 20190603
  Transmission Date: 20190711
  Serious: No
  Sender: FDA-Public Use
  Company Number: US-PFIZER INC-2019125175

PATIENT
  Age: 60 Year
  Sex: Female
  Weight: 62.59 kg

DRUGS (3)
  1. FUROSEMIDE. [Concomitant]
     Active Substance: FUROSEMIDE
     Indication: WEIGHT INCREASED
     Dosage: 20 MG, AS NEEDED (1 BY MOUTH DAILY OR AS NEEDED)
     Route: 048
     Dates: start: 20190513
  2. GABAPENTIN. [Suspect]
     Active Substance: GABAPENTIN
     Indication: PARAESTHESIA
     Dosage: 300 MG, 3X/DAY
     Route: 048
     Dates: start: 201806, end: 20181219
  3. FUROSEMIDE. [Concomitant]
     Active Substance: FUROSEMIDE
     Indication: ABDOMINAL DISTENSION

REACTIONS (7)
  - Pollakiuria [Unknown]
  - Abdominal pain upper [Unknown]
  - Off label use [Unknown]
  - Speech disorder [Unknown]
  - Drug ineffective for unapproved indication [Unknown]
  - Gait inability [Unknown]
  - Feeling abnormal [Unknown]
